FAERS Safety Report 15681728 (Version 1)
Quarter: 2018Q4

REPORT INFORMATION
  Report Type: Report from Study
  Country: GB (occurrence: GB)
  Receive Date: 20181203
  Receipt Date: 20181203
  Transmission Date: 20190205
  Serious: Yes (Other)
  Sender: FDA-Public Use
  Company Number: GB-INCYTE CORPORATION-2018IN012120

PATIENT

DRUGS (1)
  1. JAKAVI [Suspect]
     Active Substance: RUXOLITINIB
     Indication: PRODUCT USED FOR UNKNOWN INDICATION
     Dosage: 15 MG, BID
     Route: 065

REACTIONS (6)
  - Hepatomegaly [Unknown]
  - Neutropenia [Unknown]
  - Immunodeficiency [Unknown]
  - Splenomegaly [Unknown]
  - Urinary tract infection [Recovered/Resolved]
  - Drug specific antibody present [Unknown]
